FAERS Safety Report 13686640 (Version 2)
Quarter: 2017Q3

REPORT INFORMATION
  Report Type: Spontaneous
  Country: IT (occurrence: IT)
  Receive Date: 20170623
  Receipt Date: 20170706
  Transmission Date: 20171127
  Serious: Yes (Hospitalization)
  Sender: FDA-Public Use
  Company Number: IT-PURDUE-GBR-2017-0046106

PATIENT
  Age: 54 Year
  Sex: Male

DRUGS (2)
  1. TARGIN [Suspect]
     Active Substance: NALOXONE HYDROCHLORIDE\OXYCODONE HYDROCHLORIDE
     Indication: PAIN
     Dosage: 2 DF (5 MG/2.5 MG STRENGTH), DAILY
     Route: 065
  2. SEROQUEL [Suspect]
     Active Substance: QUETIAPINE FUMARATE
     Indication: BIPOLAR DISORDER
     Dosage: 800 MG, DAILY
     Route: 048

REACTIONS (1)
  - Hypokinesia [Recovered/Resolved]

NARRATIVE: CASE EVENT DATE: 20170606
